FAERS Safety Report 20635774 (Version 1)
Quarter: 2022Q1

REPORT INFORMATION
  Report Type: Report from Study
  Country: ES (occurrence: None)
  Receive Date: 20220325
  Receipt Date: 20220325
  Transmission Date: 20220423
  Serious: No
  Sender: FDA-Public Use
  Company Number: ES-Spark Therapeutics, Inc.-ES-SPK-22-00011

PATIENT
  Age: 11 Year
  Sex: Female

DRUGS (6)
  1. VORETIGENE NEPARVOVEC [Suspect]
     Active Substance: VORETIGENE NEPARVOVEC
     Indication: RPE65 gene mutation
     Dates: start: 20200218, end: 20200218
  2. VORETIGENE NEPARVOVEC [Suspect]
     Active Substance: VORETIGENE NEPARVOVEC
     Indication: Retinal dystrophy
     Dates: start: 20200225, end: 20200225
  3. VORETIGENE NEPARVOVEC [Suspect]
     Active Substance: VORETIGENE NEPARVOVEC
     Indication: Leber^s congenital amaurosis
  4. VORETIGENE NEPARVOVEC [Suspect]
     Active Substance: VORETIGENE NEPARVOVEC
     Indication: RPE65 gene mutation
     Dates: start: 20200218, end: 20200218
  5. VORETIGENE NEPARVOVEC [Suspect]
     Active Substance: VORETIGENE NEPARVOVEC
     Indication: Retinal dystrophy
     Dates: start: 20200225, end: 20200225
  6. VORETIGENE NEPARVOVEC [Suspect]
     Active Substance: VORETIGENE NEPARVOVEC
     Indication: Leber^s congenital amaurosis

REACTIONS (7)
  - Retinal degeneration [Not Recovered/Not Resolved]
  - Injection site discolouration [Not Recovered/Not Resolved]
  - Injection site discolouration [Not Recovered/Not Resolved]
  - Retinal pigmentation [Not Recovered/Not Resolved]
  - Retinal pigmentation [Not Recovered/Not Resolved]
  - Injection site atrophy [Unknown]
  - Injection site atrophy [Unknown]

NARRATIVE: CASE EVENT DATE: 20201130
